FAERS Safety Report 8459624-7 (Version None)
Quarter: 2012Q2

REPORT INFORMATION
  Report Type: 
  Country: None (occurrence: None)
  Receive Date: 20120622
  Receipt Date: 20120613
  Transmission Date: 20120825
  Serious: Yes (Hospitalization)
  Sender: FDA-Public Use
  Company Number: US-GLAXOSMITHKLINE-A0981878A

PATIENT
  Age: 76 Year
  Sex: Female

DRUGS (7)
  1. DOXEPIN [Concomitant]
  2. LOVAZA [Suspect]
     Indication: BLOOD CHOLESTEROL INCREASED
     Dosage: 2CAP TWICE PER DAY
     Route: 048
  3. EVISTA [Concomitant]
  4. CALCIUM + D [Concomitant]
  5. PRAVASTATIN [Concomitant]
  6. TRICOR [Concomitant]
  7. MULTI-VITAMIN [Concomitant]

REACTIONS (6)
  - VISUAL ACUITY REDUCED [None]
  - ARTERIOVENOUS FISTULA [None]
  - MIGRAINE [None]
  - VISION BLURRED [None]
  - DIPLOPIA [None]
  - TINNITUS [None]
